FAERS Safety Report 15226214 (Version 1)
Quarter: 2018Q3

REPORT INFORMATION
  Report Type: Spontaneous
  Country: US (occurrence: US)
  Receive Date: 20180801
  Receipt Date: 20180801
  Transmission Date: 20181010
  Serious: Yes (Hospitalization, Other)
  Sender: FDA-Public Use
  Company Number: US-GLAXOSMITHKLINE-US2018134332

PATIENT
  Sex: Male

DRUGS (2)
  1. BECONASE AQ [Suspect]
     Active Substance: BECLOMETHASONE DIPROPIONATE MONOHYDRATE
     Indication: CHRONIC SINUSITIS
     Dosage: 1 PUFF(S), QID
     Route: 055
     Dates: start: 1998
  2. BECONASE AQ [Suspect]
     Active Substance: BECLOMETHASONE DIPROPIONATE MONOHYDRATE
     Dosage: UNK, PRN

REACTIONS (6)
  - Spinal operation [Unknown]
  - Inappropriate schedule of drug administration [Unknown]
  - Product use issue [Unknown]
  - Neck surgery [Unknown]
  - Product use in unapproved indication [Unknown]
  - Intentional product misuse [Unknown]

NARRATIVE: CASE EVENT DATE: 2015
